FAERS Safety Report 5238560-3 (Version None)
Quarter: 2007Q1

REPORT INFORMATION
  Report Type: 
  Country: None (occurrence: None)
  Receive Date: 20070215
  Receipt Date: 20070206
  Transmission Date: 20070707
  Serious: Yes (Other)
  Sender: FDA-Public Use
  Company Number: GB-GLAXOSMITHKLINE-B0450923A

PATIENT
  Sex: Male

DRUGS (2)
  1. NIQUITIN CQ 4MG LOZENGE [Suspect]
     Dosage: 4MG SEE DOSAGE TEXT
     Route: 002
     Dates: start: 20010101
  2. NICOTINE [Suspect]
     Dosage: 4MG FIFTEEN TIMES PER DAY
     Route: 002
     Dates: start: 19880101

REACTIONS (6)
  - DEPENDENCE [None]
  - DIARRHOEA [None]
  - DRUG WITHDRAWAL SYNDROME [None]
  - GINGIVAL ULCERATION [None]
  - HICCUPS [None]
  - ILL-DEFINED DISORDER [None]
